FAERS Safety Report 9302612 (Version 2)
Quarter: 2013Q3

REPORT INFORMATION
  Report Type: Spontaneous
  Country: FR (occurrence: FR)
  Receive Date: 20130522
  Receipt Date: 20130719
  Transmission Date: 20140515
  Serious: Yes (Hospitalization)
  Sender: FDA-Public Use
  Company Number: FR-ROCHE-1227162

PATIENT
  Age: 40 Year
  Sex: Female

DRUGS (5)
  1. ROCEPHINE [Suspect]
     Indication: MENINGITIS
     Route: 065
     Dates: start: 20120107, end: 20120128
  2. LAROXYL [Suspect]
     Indication: PRODUCT USED FOR UNKNOWN INDICATION
     Route: 065
     Dates: start: 20120201
  3. ZYVOXID [Suspect]
     Indication: MENINGITIS
     Route: 065
     Dates: start: 20120106, end: 20130203
  4. OXYNORM [Suspect]
     Indication: PRODUCT USED FOR UNKNOWN INDICATION
     Route: 065
     Dates: start: 20120118
  5. DAFALGAN [Suspect]
     Indication: PRODUCT USED FOR UNKNOWN INDICATION
     Route: 065
     Dates: start: 201112

REACTIONS (1)
  - Meningitis aseptic [Recovered/Resolved]
